APPROVED DRUG PRODUCT: ATENOLOL
Active Ingredient: ATENOLOL
Strength: 50MG
Dosage Form/Route: TABLET;ORAL
Application: A073026 | Product #003 | TE Code: AB
Applicant: PHARMOBEDIENT CONSULTING LLC
Approved: Sep 17, 1991 | RLD: No | RS: No | Type: RX